FAERS Safety Report 5714174-3 (Version None)
Quarter: 2008Q2

REPORT INFORMATION
  Report Type: 
  Country: None (occurrence: None)
  Receive Date: 20080423
  Receipt Date: 20070827
  Transmission Date: 20081010
  Serious: No
  Sender: FDA-Public Use
  Company Number: US-KINGPHARMUSA00001-K200701095

PATIENT

DRUGS (6)
  1. SKELAXIN [Suspect]
     Indication: SPINAL COLUMN STENOSIS
     Dosage: 800 MG, TID
     Route: 048
     Dates: start: 20070824, end: 20070824
  2. ZOCOR [Concomitant]
  3. ASPIRIN [Concomitant]
  4. VERAPAMIL [Concomitant]
  5. HYTRIN [Concomitant]
  6. DIOVAN  /01319601/ [Concomitant]

REACTIONS (2)
  - ABDOMINAL PAIN UPPER [None]
  - DIARRHOEA [None]
